FAERS Safety Report 6071165-3 (Version None)
Quarter: 2009Q1

REPORT INFORMATION
  Report Type: 
  Country: None (occurrence: None)
  Receive Date: 20090209
  Receipt Date: 20090130
  Transmission Date: 20090719
  Serious: Yes (Other)
  Sender: FDA-Public Use
  Company Number: US-JNJCH-2009002965

PATIENT
  Age: 13 Month
  Sex: Male
  Weight: 11.8 kg

DRUGS (1)
  1. BENADRYL ALLERGY CHILDREN'S PERFECT MEASURE [Suspect]
     Indication: SLEEP DISORDER
     Route: 048

REACTIONS (5)
  - ABDOMINAL DISCOMFORT [None]
  - INTENTIONAL DRUG MISUSE [None]
  - VOMITING [None]
  - WITHDRAWAL SYNDROME [None]
  - WRONG DRUG ADMINISTERED [None]
